FAERS Safety Report 10149987 (Version 1)
Quarter: 2014Q2

REPORT INFORMATION
  Report Type: Spontaneous
  Country: US (occurrence: None)
  Receive Date: 20140501
  Receipt Date: 20140501
  Transmission Date: 20141212
  Serious: Yes (Hospitalization)
  Sender: FDA-Public Use
  Company Number: None

PATIENT
  Age: 69 Year
  Sex: Male

DRUGS (12)
  1. WARFARIN [Suspect]
     Indication: ATRIAL FIBRILLATION
     Route: 048
     Dates: start: 20130915, end: 20130916
  2. RANITIDINE [Concomitant]
  3. HEPARIN [Concomitant]
  4. ACETAMINOPHEN [Concomitant]
  5. ASPIRIN [Concomitant]
  6. CARVEDILOL [Concomitant]
  7. CEFEPIME [Concomitant]
  8. INSULIN [Concomitant]
  9. CHOLECALCIFEROL [Concomitant]
  10. PREDNISONE [Concomitant]
  11. MYCOPHENOLATE [Concomitant]
  12. TACROLIMUS [Concomitant]

REACTIONS (3)
  - International normalised ratio increased [None]
  - Scleral haemorrhage [None]
  - Renal failure acute [None]
